FAERS Safety Report 9748977 (Version 2)
Quarter: 2013Q4

REPORT INFORMATION
  Report Type: Spontaneous
  Country: JP (occurrence: None)
  Receive Date: 20131209
  Receipt Date: 20131217
  Transmission Date: 20140711
  Serious: Yes (Hospitalization, Other)
  Sender: FDA-Public Use
  Company Number: JP-012980

PATIENT
  Age: 77 Year
  Sex: Male
  Weight: 49.5 kg

DRUGS (6)
  1. DEGARELIX [Suspect]
     Indication: PROSTATE CANCER
     Dosage: 240 MG 1X, SUBCUTANEOUS
     Route: 058
     Dates: start: 20130612, end: 20130612
  2. ROZECLART [Suspect]
     Indication: PRODUCT USED FOR UNKNOWN INDICATION
     Dosage: 3 G, INTRAVENOUS DRIP
     Route: 041
     Dates: start: 20130819, end: 20130821
  3. MEROPEN [Suspect]
     Indication: PRODUCT USED FOR UNKNOWN INDICATION
     Dosage: 1.5 G, INTRAVENOUS DRIP
     Route: 041
     Dates: start: 20130822, end: 20130824
  4. CEFOPERAZONE SODIUM/SULBACTAM SODIUM [Suspect]
     Indication: PRODUCT USED FOR UNKNOWN INDICATION
     Dosage: 1 G TID, INTRAVENOUS DRIP
     Route: 041
     Dates: start: 20130825, end: 20130830
  5. FAMOSTAGINE [Suspect]
     Indication: PRODUCT USED FOR UNKNOWN INDICATION
     Dosage: 20 MG QOD ORAL
     Route: 048
     Dates: start: 20130608
  6. KALIMATE [Suspect]
     Indication: PRODUCT USED FOR UNKNOWN INDICATION
     Dosage: 3 DF ORAL
     Route: 048
     Dates: start: 20130624, end: 20130627

REACTIONS (4)
  - Hepatic function abnormal [None]
  - Blood potassium decreased [None]
  - Bronchopneumonia [None]
  - Lymphocyte stimulation test positive [None]
